FAERS Safety Report 21949422 (Version 2)
Quarter: 2023Q2

REPORT INFORMATION
  Report Type: Spontaneous
  Country: CA (occurrence: CA)
  Receive Date: 20230203
  Receipt Date: 20230404
  Transmission Date: 20230722
  Serious: Yes (Other)
  Sender: FDA-Public Use
  Company Number: CA-ORGANON-O2301CAN002056

PATIENT
  Age: 43 Year
  Sex: Female

DRUGS (104)
  1. BETAMETHASONE VALERATE [Suspect]
     Active Substance: BETAMETHASONE VALERATE
     Indication: Product used for unknown indication
     Dosage: 1.0 DOSAGE FORM, QD
     Route: 065
  2. BETAMETHASONE VALERATE [Suspect]
     Active Substance: BETAMETHASONE VALERATE
     Dosage: 1.0 DOSAGE FORM, 1 EVERY 2 DAYS
     Route: 065
  3. AIMOVIG [Suspect]
     Active Substance: ERENUMAB-AOOE
     Indication: Migraine
     Dosage: UNK
     Route: 065
  4. ATOMOXETINE HYDROCHLORIDE [Suspect]
     Active Substance: ATOMOXETINE HYDROCHLORIDE
     Indication: Migraine
     Dosage: 1.0 DOSAGE FORM, QD,1 EVERY 1 DAYS
     Route: 065
  5. ATOMOXETINE HYDROCHLORIDE [Suspect]
     Active Substance: ATOMOXETINE HYDROCHLORIDE
     Dosage: 1.0 DOSAGE FORM, QD,1 EVERY 2 DAYS
     Route: 065
  6. ATOMOXETINE HYDROCHLORIDE [Suspect]
     Active Substance: ATOMOXETINE HYDROCHLORIDE
     Dosage: UNK
     Route: 065
  7. FLUTICASONE FUROATE [Suspect]
     Active Substance: FLUTICASONE FUROATE
     Indication: Product used for unknown indication
     Dosage: 1.0 DOSAGE FORM, QD, 1 EVERY 1 DAYS
     Route: 065
  8. AZELAIC ACID [Suspect]
     Active Substance: AZELAIC ACID
     Indication: Product used for unknown indication
     Dosage: 2 EVERY 1 DAY
     Route: 065
  9. AZELAIC ACID [Suspect]
     Active Substance: AZELAIC ACID
     Dosage: UNK
     Route: 065
  10. BOTULINUM TOXIN TYPE A [Suspect]
     Active Substance: BOTULINUM TOXIN TYPE A
     Indication: Product used for unknown indication
     Dosage: DOSAGE FORM: POWDER FOR SOLUTION
     Route: 065
  11. BUPRENORPHINE [Suspect]
     Active Substance: BUPRENORPHINE
     Indication: Product used for unknown indication
     Dosage: UNK
     Route: 065
  12. BUTRANS [Suspect]
     Active Substance: BUPRENORPHINE
     Indication: Product used for unknown indication
     Dosage: DOSAGE FORM: PATCH
     Route: 065
  13. CALCIUM [Suspect]
     Active Substance: CALCIUM
     Indication: Product used for unknown indication
     Dosage: UNK
     Route: 065
  14. CALCIUM PANTOTHENATE [Suspect]
     Active Substance: CALCIUM PANTOTHENATE
     Indication: Product used for unknown indication
     Dosage: 1.0 DOSAGE FORM
     Route: 065
  15. CALCIUM\CHOLECALCIFEROL\MAGNESIUM [Suspect]
     Active Substance: CALCIUM\CHOLECALCIFEROL\MAGNESIUM
     Indication: Product used for unknown indication
     Dosage: 1 DOSAGE FORM, 1 EVERY 1 DAYS
     Route: 065
  16. CANDESARTAN CILEXETIL [Suspect]
     Active Substance: CANDESARTAN CILEXETIL
     Indication: Migraine
     Dosage: UNK
     Route: 048
  17. CANDESARTAN CILEXETIL [Suspect]
     Active Substance: CANDESARTAN CILEXETIL
     Dosage: UNK
     Route: 048
  18. CETIRIZINE HYDROCHLORIDE [Suspect]
     Active Substance: CETIRIZINE HYDROCHLORIDE
     Indication: Product used for unknown indication
     Dosage: 1.0 DOSAGE FORM, 1 EVERY 1 DAYS
     Route: 065
  19. CETIRIZINE HYDROCHLORIDE [Suspect]
     Active Substance: CETIRIZINE HYDROCHLORIDE
     Dosage: 3.0 DOSAGE FORM, 1 EVERY 1 DAYS
     Route: 065
  20. CETIRIZINE HYDROCHLORIDE [Suspect]
     Active Substance: CETIRIZINE HYDROCHLORIDE
     Dosage: 3.0 DOSAGE FORM, 1 EVERY 2 DAYS
     Route: 065
  21. CETIRIZINE HYDROCHLORIDE [Suspect]
     Active Substance: CETIRIZINE HYDROCHLORIDE
     Dosage: UNK
     Route: 065
  22. CETIRIZINE HYDROCHLORIDE [Suspect]
     Active Substance: CETIRIZINE HYDROCHLORIDE
     Indication: Product used for unknown indication
     Dosage: UNK
     Route: 065
  23. CETIRIZINE HYDROCHLORIDE\PSEUDOEPHEDRINE HYDROCHLORIDE [Suspect]
     Active Substance: CETIRIZINE HYDROCHLORIDE\PSEUDOEPHEDRINE HYDROCHLORIDE
     Indication: Product used for unknown indication
     Dosage: 1 DOSAGE FORM, 1 EVERY 1 DAY
     Route: 065
  24. CORTISONE (HYDROCORTISONE) [Suspect]
     Active Substance: HYDROCORTISONE
     Indication: Product used for unknown indication
     Dosage: 2 EVERY 1 DAYS
     Route: 065
  25. CYCLOBENZAPRINE HYDROCHLORIDE [Suspect]
     Active Substance: CYCLOBENZAPRINE HYDROCHLORIDE
     Indication: Product used for unknown indication
     Dosage: 1.0 DOSAGE FORM, 1EVERY 1 DAYS
     Route: 065
  26. CYCLOBENZAPRINE HYDROCHLORIDE [Suspect]
     Active Substance: CYCLOBENZAPRINE HYDROCHLORIDE
     Dosage: 1.0 DOSAGE FORM, 1EVERY 2 DAYS
     Route: 065
  27. DESOXIMETASONE [Suspect]
     Active Substance: DESOXIMETASONE
     Indication: Product used for unknown indication
     Dosage: 25 MILLIGRAM, 2 EVERY 1 DAYS
     Route: 065
  28. DESOXIMETASONE [Suspect]
     Active Substance: DESOXIMETASONE
     Dosage: 25 MILLIGRAM,  2 EVERY 1 DAYS
     Route: 065
  29. DESOXIMETASONE [Suspect]
     Active Substance: DESOXIMETASONE
     Indication: Product used for unknown indication
     Dosage: 1 DOSAGE FORM, 2 EVERY 1 DAYS; DOSAGE FORM: NOT SPECIFIED
     Route: 065
  30. DESOXIMETASONE [Suspect]
     Active Substance: DESOXIMETASONE
     Dosage: 3 MILLIGRAM
     Route: 065
  31. DESOXIMETASONE [Suspect]
     Active Substance: DESOXIMETASONE
     Dosage: 25 MILLIGRAM, BID
     Route: 065
  32. DESOXIMETASONE [Suspect]
     Active Substance: DESOXIMETASONE
     Dosage: 3 MILLIGRAM, QD
     Route: 065
  33. DESOXIMETASONE [Suspect]
     Active Substance: DESOXIMETASONE
     Dosage: 2 EVERY 1 DAYS; DOSAGE FORM: NOT SPECIFIED
     Route: 065
  34. VITAMINS [Suspect]
     Active Substance: VITAMINS
     Indication: Product used for unknown indication
     Dosage: UNK
     Route: 065
  35. DOMPERIDONE [Suspect]
     Active Substance: DOMPERIDONE
     Indication: Product used for unknown indication
     Dosage: UNK
     Route: 065
  36. DOMPERIDONE\PANTOPRAZOLE SODIUM [Suspect]
     Active Substance: DOMPERIDONE\PANTOPRAZOLE SODIUM
     Indication: Product used for unknown indication
     Dosage: 1 DOSAGE FORM
     Route: 065
  37. DOMPERIDONE\PANTOPRAZOLE SODIUM [Suspect]
     Active Substance: DOMPERIDONE\PANTOPRAZOLE SODIUM
     Dosage: 1 DOSAGE FORM, QOD
     Route: 065
  38. DOMPERIDONE\PANTOPRAZOLE SODIUM [Suspect]
     Active Substance: DOMPERIDONE\PANTOPRAZOLE SODIUM
     Dosage: 3 DOSAGE FORM
     Route: 065
  39. DOMPERIDONE\PANTOPRAZOLE SODIUM [Suspect]
     Active Substance: DOMPERIDONE\PANTOPRAZOLE SODIUM
     Dosage: 1 DOSAGE FORM, QOD
     Route: 065
  40. DOMPERIDONE\PANTOPRAZOLE SODIUM [Suspect]
     Active Substance: DOMPERIDONE\PANTOPRAZOLE SODIUM
     Dosage: 1 DOSAGE FORM, QID
     Route: 065
  41. DOMPERIDONE\PANTOPRAZOLE SODIUM [Suspect]
     Active Substance: DOMPERIDONE\PANTOPRAZOLE SODIUM
     Dosage: 3 DOSAGE FORM
     Route: 065
  42. ERENUMAB [Suspect]
     Active Substance: ERENUMAB
     Indication: Migraine
     Dosage: UNK
     Route: 065
  43. ERENUMAB-AOOE [Suspect]
     Active Substance: ERENUMAB-AOOE
     Indication: Migraine
     Dosage: UNK
     Route: 065
  44. ERENUMAB-AOOE [Suspect]
     Active Substance: ERENUMAB-AOOE
     Indication: Product used for unknown indication
     Dosage: UNK
     Route: 065
  45. FETZIMA [Suspect]
     Active Substance: LEVOMILNACIPRAN HYDROCHLORIDE
     Indication: Product used for unknown indication
     Dosage: 1.0 DOSAGE FORM, 1 EVERY 1 DAYS
     Route: 065
  46. FETZIMA [Suspect]
     Active Substance: LEVOMILNACIPRAN HYDROCHLORIDE
     Dosage: 1.0 DOSAGE FORM, 1 EVERY 2 DAYS
     Route: 065
  47. FINACEA [Suspect]
     Active Substance: AZELAIC ACID
     Indication: Product used for unknown indication
     Dosage: 1.0 DOSAGE FORM, QD
     Route: 065
  48. FINACEA [Suspect]
     Active Substance: AZELAIC ACID
     Dosage: 1.0 DOSAGE FORM, QOD
     Route: 065
  49. FLUTICASONE FUROATE [Suspect]
     Active Substance: FLUTICASONE FUROATE
     Indication: Product used for unknown indication
     Dosage: 1.0 DOSAGE FORM, 1 EVERY 1 DAYS
     Route: 065
  50. HYDROMORPHONE [Suspect]
     Active Substance: HYDROMORPHONE
     Indication: Product used for unknown indication
     Dosage: 1.0 DOSAGE FORM, 1 EVERY 1 DAYS
     Route: 065
  51. HYDROMORPHONE [Suspect]
     Active Substance: HYDROMORPHONE
     Dosage: 1.0 DOSAGE FORM; DOSAGE FORM: NOT SPECIFIED
     Route: 065
  52. HYDROMORPHONE [Suspect]
     Active Substance: HYDROMORPHONE
     Dosage: 1.0 DOSAGE FORM, 2 EVERY 1 DAYS
     Route: 065
  53. HYDROMORPHONE [Suspect]
     Active Substance: HYDROMORPHONE
     Dosage: UNK
     Route: 065
  54. HYDROMORPHONE [Suspect]
     Active Substance: HYDROMORPHONE
     Dosage: 2 DOSAGE FORM
     Route: 065
  55. HYDROMORPHONE [Suspect]
     Active Substance: HYDROMORPHONE
     Dosage: 1 DOSAGE FORM, QOD
     Route: 065
  56. HYDROMORPHONE HYDROCHLORIDE [Suspect]
     Active Substance: HYDROMORPHONE HYDROCHLORIDE
     Indication: Product used for unknown indication
     Dosage: 1.0 DOSAGE FORM, 2 EVERY 1 DAYS
     Route: 065
  57. HYDROMORPHONE HYDROCHLORIDE [Suspect]
     Active Substance: HYDROMORPHONE HYDROCHLORIDE
     Dosage: 1.0 DOSAGE FORM
     Route: 065
  58. LAMICTAL [Suspect]
     Active Substance: LAMOTRIGINE
     Indication: Product used for unknown indication
     Dosage: 50 MILLIGRAM, 1 EVERY 1 DAYS
     Route: 048
  59. LAMICTAL [Suspect]
     Active Substance: LAMOTRIGINE
     Dosage: 25 MILLIGRAM, 1 EVERY 1 DAYS
     Route: 048
  60. LAMICTAL [Suspect]
     Active Substance: LAMOTRIGINE
     Dosage: 25 MILLIGRAM, 2 EVERY 1 DAYS
     Route: 048
  61. LAMICTAL [Suspect]
     Active Substance: LAMOTRIGINE
     Dosage: 50 MILLIGRAM, 2 EVERY 1 DAYS
     Route: 048
  62. LAMICTAL [Suspect]
     Active Substance: LAMOTRIGINE
     Dosage: 50 MILLIGRAM
     Route: 065
  63. LAMICTAL [Suspect]
     Active Substance: LAMOTRIGINE
     Dosage: 25 MILLIGRAM, QOD
     Route: 065
  64. LAMOTRIGINE [Suspect]
     Active Substance: LAMOTRIGINE
     Indication: Product used for unknown indication
     Dosage: 25.0 DOSAGE FORM, 2 EVERY 1 DAYS
     Route: 048
  65. MAGNESIUM [Suspect]
     Active Substance: MAGNESIUM
     Indication: Product used for unknown indication
     Dosage: DOSAGE FORM: NOT SPECIFIED
     Route: 065
  66. MILNACIPRAN HYDROCHLORIDE [Suspect]
     Active Substance: MILNACIPRAN HYDROCHLORIDE
     Indication: Product used for unknown indication
     Dosage: 1.0 DOSAGE FORM, 1 EVERY 1 DAYS
     Route: 065
  67. MILNACIPRAN HYDROCHLORIDE [Suspect]
     Active Substance: MILNACIPRAN HYDROCHLORIDE
     Dosage: 1.0 DOSAGE FORM, 1 EVERY 2 DAYS
     Route: 065
  68. MYRBETRIQ [Suspect]
     Active Substance: MIRABEGRON
     Indication: Product used for unknown indication
     Dosage: 1.0 DOSAGE FORM, 1 EVERY 1 DAYS
     Route: 065
  69. MYRBETRIQ [Suspect]
     Active Substance: MIRABEGRON
     Dosage: 1.0 DOSAGE FORM, 1 EVERY 2 DAYS
     Route: 065
  70. NAPROXEN [Suspect]
     Active Substance: NAPROXEN
     Indication: Product used for unknown indication
     Dosage: 2.0 DOSAGE FORM, 2 EVERY 1 DAYS
     Route: 065
  71. NAPROXEN [Suspect]
     Active Substance: NAPROXEN
     Dosage: 1 DOSAGE FORM, 1 EVERY 1 DAYS
     Route: 065
  72. NAPROXEN [Suspect]
     Active Substance: NAPROXEN
     Dosage: 1 DOSAGE FORM, 1 EVERY 1 DAYS
     Route: 065
  73. NAPROXEN [Suspect]
     Active Substance: NAPROXEN
     Dosage: 1 DOSAGE FORM
     Route: 065
  74. NAPROXEN [Suspect]
     Active Substance: NAPROXEN
     Dosage: 1 DOSAGE FORM, 1 EVERY 2 DAYS
     Route: 065
  75. NAPROXEN [Suspect]
     Active Substance: NAPROXEN
     Indication: Product used for unknown indication
     Dosage: 1.0 DOSAGE FORM, 2 EVERY 1 DAYS; DOSAGE FORM: NOT SPECIFIED
     Route: 065
  76. NAPROXEN [Suspect]
     Active Substance: NAPROXEN
     Dosage: 1.0 DOSAGE FORM, 2 EVERY 1 DAYS; DOSAGE FORM: NOT SPECIFIED
     Route: 065
  77. PANTOPRAZOLE [Suspect]
     Active Substance: PANTOPRAZOLE
     Indication: Product used for unknown indication
     Dosage: DOSAGE FORM: NOT SPECIFIED
     Route: 065
  78. PANTOPRAZOLE SODIUM [Suspect]
     Active Substance: PANTOPRAZOLE SODIUM
     Indication: Product used for unknown indication
     Dosage: 1.0 DOSAGE FORM, 2 EVERY 1 DAYS
     Route: 065
  79. PANTOPRAZOLE SODIUM [Suspect]
     Active Substance: PANTOPRAZOLE SODIUM
     Dosage: 1.0 DOSAGE FORM, 1 EVERY 2DAYS
     Route: 065
  80. PANTOPRAZOLE SODIUM [Suspect]
     Active Substance: PANTOPRAZOLE SODIUM
     Dosage: 2.0 DOSAGE FORM, 1 EVERY 1 DAYS
     Route: 065
  81. PAROXETINE [Suspect]
     Active Substance: PAROXETINE
     Indication: Product used for unknown indication
     Dosage: UNK
     Route: 065
  82. PHOSPHORUS [Suspect]
     Active Substance: PHOSPHORUS
     Indication: Product used for unknown indication
     Dosage: DOSAGE FORM: NOT SPECIFIED
     Route: 065
  83. PSEUDOEPHEDRINE HYDROCHLORIDE [Suspect]
     Active Substance: PSEUDOEPHEDRINE HYDROCHLORIDE
     Indication: Product used for unknown indication
     Dosage: UNK
     Route: 065
  84. RANITIDINE HYDROCHLORIDE [Suspect]
     Active Substance: RANITIDINE HYDROCHLORIDE
     Indication: Product used for unknown indication
     Dosage: UNK
     Route: 065
  85. RANITIDINE HYDROCHLORIDE [Suspect]
     Active Substance: RANITIDINE HYDROCHLORIDE
     Dosage: UNK
     Route: 065
  86. RANITIDINE HYDROCHLORIDE [Suspect]
     Active Substance: RANITIDINE HYDROCHLORIDE
     Dosage: UNK
     Route: 065
  87. CETIRIZINE HYDROCHLORIDE [Suspect]
     Active Substance: CETIRIZINE HYDROCHLORIDE
     Indication: Product used for unknown indication
     Dosage: UNK
     Route: 065
  88. STRATTERA [Suspect]
     Active Substance: ATOMOXETINE HYDROCHLORIDE
     Indication: Product used for unknown indication
     Dosage: DOSAGE FORM: NOT SPECIFIED
     Route: 065
  89. STRATTERA [Suspect]
     Active Substance: ATOMOXETINE HYDROCHLORIDE
     Indication: Migraine
  90. TOPIRAMATE [Suspect]
     Active Substance: TOPIRAMATE
     Indication: Product used for unknown indication
     Dosage: 25.0 MILLIGRAM, 1 EVERY 2 DAYS; DOSAGE FORM: NOT SPECIFIED
     Route: 065
  91. TOPIRAMATE [Suspect]
     Active Substance: TOPIRAMATE
     Indication: Migraine
     Dosage: 25.0 MILLIGRAM, 1 EVERY 2 DAYS; DOSAGE FORM: NOT SPECIFIED
     Route: 065
  92. TOPIRAMATE [Suspect]
     Active Substance: TOPIRAMATE
     Dosage: 25.0 MILLIGRAM, 1 EVERY 1 DAYS; DOSAGE FORM: NOT SPECIFIED
     Route: 065
  93. TOPIRAMATE [Suspect]
     Active Substance: TOPIRAMATE
     Dosage: 3 MILLIGRAM, QD
     Route: 065
  94. TRAZODONE [Suspect]
     Active Substance: TRAZODONE HYDROCHLORIDE
     Indication: Product used for unknown indication
     Dosage: 1.0 DOSAGE FORM, 1 EVERY 1 DAYS
     Route: 065
  95. TRAZODONE [Suspect]
     Active Substance: TRAZODONE HYDROCHLORIDE
     Dosage: 1.0 DOSAGE FORM, 1 EVERY 2 DAYS
     Route: 065
  96. TRAZODONE HYDROCHLORIDE [Suspect]
     Active Substance: TRAZODONE HYDROCHLORIDE
     Indication: Product used for unknown indication
     Dosage: 1.0 DOSAGE FORM, 1 EVERY 1 DAYS
     Route: 065
  97. TRETINOIN [Suspect]
     Active Substance: TRETINOIN
     Indication: Product used for unknown indication
     Dosage: 1.0 DOSAGE FORM, 1 EVERY 1 DAYS
     Route: 065
  98. TRETINOIN [Suspect]
     Active Substance: TRETINOIN
     Dosage: 1.0 DOSAGE FORM, 1 EVERY 2 DAYS
     Route: 065
  99. VITAMIN C [Suspect]
     Active Substance: ASCORBIC ACID
     Indication: Product used for unknown indication
     Dosage: UNK
     Route: 065
  100. CHOLECALCIFEROL [Suspect]
     Active Substance: CHOLECALCIFEROL
     Indication: Product used for unknown indication
     Dosage: UNK
     Route: 065
  101. VITAMIN D3 [Suspect]
     Active Substance: CHOLECALCIFEROL
     Indication: Product used for unknown indication
     Dosage: UNK
     Route: 065
  102. VITAMIN D3 [Suspect]
     Active Substance: CHOLECALCIFEROL
     Dosage: UNK
     Route: 065
  103. VITAMIN D3 [Suspect]
     Active Substance: CHOLECALCIFEROL
     Indication: Product used for unknown indication
     Dosage: UNK
     Route: 065
  104. VITAMINS NOS [Suspect]
     Active Substance: VITAMINS
     Indication: Product used for unknown indication
     Dosage: UNK
     Route: 065

REACTIONS (15)
  - Abdominal pain upper [Unknown]
  - Blepharospasm [Unknown]
  - Drug ineffective [Unknown]
  - Drug intolerance [Unknown]
  - Epilepsy [Unknown]
  - Gastrooesophageal reflux disease [Unknown]
  - Hypoaesthesia [Unknown]
  - Memory impairment [Unknown]
  - Migraine [Unknown]
  - Off label use [Unknown]
  - Pain [Unknown]
  - Paraesthesia [Unknown]
  - Product use in unapproved indication [Unknown]
  - Taste disorder [Unknown]
  - Vomiting [Unknown]
